FAERS Safety Report 8199412-2 (Version None)
Quarter: 2012Q1

REPORT INFORMATION
  Report Type: 
  Country: None (occurrence: None)
  Receive Date: 20120309
  Receipt Date: 20120306
  Transmission Date: 20120608
  Serious: Yes (Other)
  Sender: FDA-Public Use
  Company Number: US-B.I. PHARMACEUTICALS,INC./RIDGEFIELD-2012-BP-04265BP

PATIENT
  Age: 78 Year
  Sex: Male

DRUGS (3)
  1. LISINOPRIL [Concomitant]
     Indication: HYPERTENSION
     Route: 048
  2. POTASSIUM [Concomitant]
     Indication: CARDIAC DISORDER
     Route: 048
     Dates: start: 20120201
  3. AGGRENOX [Suspect]
     Indication: CEREBROVASCULAR ACCIDENT PROPHYLAXIS
     Route: 048
     Dates: start: 20110701

REACTIONS (3)
  - CARDIAC DISORDER [None]
  - FLUID RETENTION [None]
  - CARDIAC FAILURE CONGESTIVE [None]
